FAERS Safety Report 4843049-7 (Version None)
Quarter: 2005Q4

REPORT INFORMATION
  Report Type: 
  Country: None (occurrence: None)
  Receive Date: 20051130
  Receipt Date: 20051122
  Transmission Date: 20060501
  Serious: Yes (Hospitalization)
  Sender: FDA-Public Use
  Company Number: 2005-11-1216

PATIENT
  Sex: Female

DRUGS (1)
  1. DIPROSONE [Suspect]
     Indication: CERVICOBRACHIAL SYNDROME
     Dosage: INTRAVENOUS
     Route: 042

REACTIONS (1)
  - URTICARIA [None]
